FAERS Safety Report 10003922 (Version 1)
Quarter: 2014Q1

REPORT INFORMATION
  Report Type: Spontaneous
  Country: US (occurrence: US)
  Receive Date: 20140312
  Receipt Date: 20140312
  Transmission Date: 20141002
  Serious: No
  Sender: FDA-Public Use
  Company Number: US-ABBVIE-13P-163-1178479-00

PATIENT
  Sex: Female
  Weight: 74.91 kg

DRUGS (4)
  1. DEPAKOTE [Suspect]
     Indication: BIPOLAR DISORDER
     Dates: start: 2003
  2. DIVALPROEX SODIUM [Suspect]
     Indication: BIPOLAR DISORDER
  3. BUPROPION [Concomitant]
     Indication: BIPOLAR DISORDER
  4. ATORVASTATIN [Concomitant]
     Indication: BLOOD CHOLESTEROL INCREASED

REACTIONS (2)
  - Headache [Not Recovered/Not Resolved]
  - Drug effect incomplete [Not Recovered/Not Resolved]
